FAERS Safety Report 10037058 (Version 2)
Quarter: 2014Q1

REPORT INFORMATION
  Report Type: Spontaneous
  Country: US (occurrence: US)
  Receive Date: 20140326
  Receipt Date: 20140326
  Transmission Date: 20141002
  Serious: Yes (Hospitalization)
  Sender: FDA-Public Use
  Company Number: US-RANBAXY-2014US-78992

PATIENT
  Age: 60 Year
  Sex: Male

DRUGS (3)
  1. LORAZEPAM [Suspect]
     Indication: AGGRESSION
     Dosage: UNK
     Route: 065
  2. HALOPERIDOL [Interacting]
     Indication: AGGRESSION
     Dosage: UNK
     Route: 030
  3. KAVA [Interacting]
     Indication: PRODUCT USED FOR UNKNOWN INDICATION
     Dosage: UNK
     Route: 048

REACTIONS (4)
  - Drug interaction [Unknown]
  - Toxicity to various agents [Unknown]
  - Atrial flutter [Unknown]
  - Hypoxia [Unknown]
